FAERS Safety Report 25381579 (Version 2)
Quarter: 2025Q4

REPORT INFORMATION
  Report Type: Report from Study
  Country: GB (occurrence: GB)
  Receive Date: 20250531
  Receipt Date: 20251128
  Transmission Date: 20260117
  Serious: Yes (Other)
  Sender: CELLTRION
  Company Number: GB-CELLTRION INC.-2025GB016496

PATIENT

DRUGS (1)
  1. INFLIXIMAB-DYYB [Suspect]
     Active Substance: INFLIXIMAB-DYYB
     Indication: Crohn^s disease
     Dosage: 2 X REMSIMA 120MG/1ML SOLUTION FOR INJECTION PRE-FILLED PENS - INJECT ONE PRE-FILLED PEN EVERY TWO W
     Route: 058
     Dates: start: 202502

REACTIONS (9)
  - Thrombosis [Unknown]
  - Lower respiratory tract infection [Unknown]
  - Malaise [Unknown]
  - Weight increased [Unknown]
  - Productive cough [Unknown]
  - Blood magnesium decreased [Unknown]
  - Anxiety [Unknown]
  - Injection site pain [Unknown]
  - Intentional dose omission [Unknown]
